FAERS Safety Report 12429049 (Version 1)
Quarter: 2016Q2

REPORT INFORMATION
  Report Type: Spontaneous
  Country: IT (occurrence: RS)
  Receive Date: 20160602
  Receipt Date: 20160602
  Transmission Date: 20160815
  Serious: Yes (Other)
  Sender: FDA-Public Use
  Company Number: RS-FRI-1000085087

PATIENT
  Age: 62 Year
  Sex: Female

DRUGS (3)
  1. NEBIVOLOL. [Suspect]
     Active Substance: NEBIVOLOL
     Indication: HYPERTENSION
     Dosage: 5 MG
     Route: 065
     Dates: start: 20160328, end: 20160403
  2. PREXANIL [Concomitant]
     Active Substance: PERINDOPRIL
     Indication: HYPERTENSION
     Dosage: 5 MG
     Dates: start: 2010
  3. NEBIVOLOL. [Suspect]
     Active Substance: NEBIVOLOL
     Dosage: 2.5 MG
     Route: 065
     Dates: start: 20160404

REACTIONS (2)
  - Suicidal ideation [Unknown]
  - Headache [Recovered/Resolved]

NARRATIVE: CASE EVENT DATE: 20160329
